FAERS Safety Report 5603209-4 (Version None)
Quarter: 2008Q1

REPORT INFORMATION
  Report Type: 
  Country: None (occurrence: None)
  Receive Date: 20080125
  Receipt Date: 20080114
  Transmission Date: 20080703
  Serious: Yes (Other)
  Sender: FDA-Public Use
  Company Number: DE-PFIZER INC-2008004070

PATIENT
  Sex: Female
  Weight: 70 kg

DRUGS (1)
  1. LYRICA [Suspect]
     Indication: NEURALGIA
     Dosage: DAILY DOSE:300MG
     Route: 048
     Dates: start: 20071115, end: 20071129

REACTIONS (4)
  - DIZZINESS [None]
  - OEDEMA [None]
  - SKIN DISORDER [None]
  - WEIGHT INCREASED [None]
